FAERS Safety Report 9514668 (Version 1)
Quarter: 2013Q3

REPORT INFORMATION
  Report Type: Spontaneous
  Country: DE (occurrence: DE)
  Receive Date: 20130911
  Receipt Date: 20130911
  Transmission Date: 20140515
  Serious: Yes (Other)
  Sender: FDA-Public Use
  Company Number: DE-BAYER-2013-109076

PATIENT
  Age: 52 Year
  Sex: Female

DRUGS (4)
  1. CIPROBAY [Suspect]
     Dosage: 200 UNK, UNK
  2. BAYPEN [Concomitant]
     Dosage: 4 G, UNK
  3. METRONIDAZOL [Concomitant]
  4. BELOC [Concomitant]

REACTIONS (4)
  - Brain oedema [None]
  - Status epilepticus [None]
  - Renal failure acute [None]
  - Monoparesis [None]
